FAERS Safety Report 9701428 (Version 2)
Quarter: 2013Q4

REPORT INFORMATION
  Report Type: Spontaneous
  Country: US (occurrence: US)
  Receive Date: 20131121
  Receipt Date: 20131121
  Transmission Date: 20140711
  Serious: No
  Sender: FDA-Public Use
  Company Number: US-GILEAD-2008-0016562

PATIENT
  Sex: Female

DRUGS (15)
  1. LETAIRIS [Suspect]
     Indication: PULMONARY ARTERIAL HYPERTENSION
     Route: 048
     Dates: start: 20080124, end: 20080423
  2. PROCARDIA [Concomitant]
     Route: 048
  3. DIOVAN [Concomitant]
     Route: 048
  4. TOPROL XL [Concomitant]
     Route: 048
  5. PLAVIX [Concomitant]
     Route: 048
  6. NITRO-DUR [Concomitant]
     Route: 062
  7. VYTORIN [Concomitant]
     Route: 048
  8. GLUCOTROL [Concomitant]
     Route: 048
  9. CELEBREX [Concomitant]
     Route: 048
  10. BENADRYL [Concomitant]
     Route: 048
  11. PREVACID [Concomitant]
     Route: 048
  12. VITAMIN E [Concomitant]
     Route: 048
  13. CENTRUM SILVER [Concomitant]
     Route: 048
  14. KLOR-CON [Concomitant]
     Route: 048
  15. QUININE HCL [Concomitant]
     Route: 048

REACTIONS (5)
  - Decreased appetite [None]
  - Nausea [None]
  - Vomiting [None]
  - Asthenia [None]
  - Insomnia [None]
